APPROVED DRUG PRODUCT: SELENOMETHIONINE SE 75
Active Ingredient: SELENOMETHIONINE SE-75
Strength: 500uCi/ML
Dosage Form/Route: INJECTABLE;INJECTION
Application: N017322 | Product #001
Applicant: PHARMALUCENCE INC
Approved: Approved Prior to Jan 1, 1982 | RLD: No | RS: No | Type: DISCN